FAERS Safety Report 18578450 (Version 5)
Quarter: 2021Q3

REPORT INFORMATION
  Report Type: Spontaneous
  Country: US (occurrence: US)
  Receive Date: 20201204
  Receipt Date: 20210808
  Transmission Date: 20211014
  Serious: Yes (Hospitalization)
  Sender: FDA-Public Use
  Company Number: US-SA-2020SA347044

PATIENT
  Age: 61 Year
  Sex: Female

DRUGS (5)
  1. DUPIXENT [Suspect]
     Active Substance: DUPILUMAB
     Indication: DERMATITIS ATOPIC
     Dosage: 600 MG, 1X, 300MG/2ML (2X2ML)
     Route: 058
     Dates: start: 202011, end: 202011
  2. HYDROXYZINE [Suspect]
     Active Substance: HYDROXYZINE HYDROCHLORIDE
     Dosage: UNK
     Route: 065
  3. DUPIXENT [Suspect]
     Active Substance: DUPILUMAB
     Indication: NEURODERMATITIS
     Dosage: 300 MG, QOW
     Route: 058
     Dates: start: 202011, end: 2020
  4. DUPIXENT [Suspect]
     Active Substance: DUPILUMAB
     Dosage: 300 MG, QOW
     Route: 058
  5. DUPIXENT [Suspect]
     Active Substance: DUPILUMAB
     Dosage: 300 MG, QOW
     Route: 058
     Dates: start: 202106

REACTIONS (8)
  - Bacterial infection [Unknown]
  - Hypoacusis [Unknown]
  - SARS-CoV-2 test positive [Unknown]
  - Dry skin [Unknown]
  - COVID-19 [Unknown]
  - Influenza [Unknown]
  - Skin exfoliation [Unknown]
  - Gastrointestinal disorder [Unknown]

NARRATIVE: CASE EVENT DATE: 202011
